FAERS Safety Report 26045261 (Version 1)
Quarter: 2025Q4

REPORT INFORMATION
  Report Type: Other
  Country: EU (occurrence: EU)
  Receive Date: 20251114
  Receipt Date: 20251114
  Transmission Date: 20260118
  Serious: Yes (Disabling)
  Sender: ZYDUS PHARM
  Company Number: None

PATIENT

DRUGS (1)
  1. EXEMESTANE [Suspect]
     Active Substance: EXEMESTANE
     Indication: Breast cancer
     Dosage: UNK
     Route: 048
     Dates: start: 20240831

REACTIONS (3)
  - Cubital tunnel syndrome [Not Recovered/Not Resolved]
  - Dupuytren^s contracture [Not Recovered/Not Resolved]
  - Joint stiffness [Recovering/Resolving]

NARRATIVE: CASE EVENT DATE: 20240915
